FAERS Safety Report 24703107 (Version 1)
Quarter: 2024Q4

REPORT INFORMATION
  Report Type: Spontaneous
  Country: RU (occurrence: RU)
  Receive Date: 20241205
  Receipt Date: 20241205
  Transmission Date: 20250115
  Serious: Yes (Death, Other)
  Sender: PFIZER
  Company Number: RU-PFIZER INC-PV202400156597

PATIENT
  Age: 23 Year
  Sex: Male

DRUGS (4)
  1. BESPONSA [Suspect]
     Active Substance: INOTUZUMAB OZOGAMICIN
     Indication: Acute lymphocytic leukaemia
     Dosage: 1ST DAY, FIRST CYCLE 3-4 WEEKS
     Route: 030
     Dates: start: 202204
  2. BESPONSA [Suspect]
     Active Substance: INOTUZUMAB OZOGAMICIN
     Dosage: 8TH DAY AND 15TH DAY, FIRST CYCLE 3-4 WEEKS
     Route: 030
  3. BESPONSA [Suspect]
     Active Substance: INOTUZUMAB OZOGAMICIN
     Dosage: IN THE SECOND CYCLE ALL INJECTIONS (1ST, 8TH, 15TH DAY) AT 0.5 MG/M2, IF COMPLETE REMISSION OR UNCER
     Route: 030
     Dates: end: 202205
  4. BLINATUMOMAB [Suspect]
     Active Substance: BLINATUMOMAB

REACTIONS (6)
  - Neoplasm progression [Fatal]
  - Thrombocytopenia [Unknown]
  - Neutropenia [Unknown]
  - Graft versus host disease [Unknown]
  - Anaemia [Unknown]
  - Cytomegalovirus infection [Unknown]
